FAERS Safety Report 7202433-7 (Version None)
Quarter: 2010Q4

REPORT INFORMATION
  Report Type: 
  Country: None (occurrence: None)
  Receive Date: 20101229
  Receipt Date: 20101222
  Transmission Date: 20110411
  Serious: Yes (Death)
  Sender: FDA-Public Use
  Company Number: A0901501A

PATIENT
  Age: 65 Year
  Sex: Female

DRUGS (1)
  1. VOTRIENT [Suspect]
     Dosage: 200MG UNKNOWN
     Route: 048

REACTIONS (1)
  - DEATH [None]
